FAERS Safety Report 23977595 (Version 1)
Quarter: 2024Q2

REPORT INFORMATION
  Report Type: Report from Study
  Country: US (occurrence: US)
  Receive Date: 20240614
  Receipt Date: 20240614
  Transmission Date: 20240715
  Serious: Yes (Hospitalization, Other)
  Sender: FDA-Public Use
  Company Number: US-PARATEK PHARMACEUTICALS, INC.-2024PTK00297

PATIENT
  Sex: Female

DRUGS (5)
  1. NUZYRA [Suspect]
     Active Substance: OMADACYCLINE
     Indication: Mastoiditis
     Dosage: 300 MG, 1X/DAY
     Route: 048
     Dates: start: 202404
  2. NUZYRA [Suspect]
     Active Substance: OMADACYCLINE
     Indication: Mycobacterial infection
  3. NUZYRA [Suspect]
     Active Substance: OMADACYCLINE
     Indication: Meningitis
  4. AZITHROMYCIN [Concomitant]
     Active Substance: AZITHROMYCIN
  5. TEDIZOLID [Concomitant]
     Active Substance: TEDIZOLID

REACTIONS (4)
  - Intracranial pressure increased [Unknown]
  - Myelosuppression [Unknown]
  - Off label use [Not Recovered/Not Resolved]
  - Incorrect product administration duration [Not Recovered/Not Resolved]

NARRATIVE: CASE EVENT DATE: 20240101
